FAERS Safety Report 10557070 (Version 1)
Quarter: 2014Q4

REPORT INFORMATION
  Report Type: Spontaneous
  Country: US (occurrence: None)
  Receive Date: 20141030
  Receipt Date: 20141030
  Transmission Date: 20150529
  Serious: Yes (Hospitalization)
  Sender: FDA-Public Use
  Company Number: None

PATIENT
  Age: 70 Year
  Sex: Male
  Weight: 75.1 kg

DRUGS (1)
  1. POMALIDOMIDE [Suspect]
     Active Substance: POMALIDOMIDE
     Indication: PLASMA CELL MYELOMA
     Dosage: MG, PO
     Route: 048
     Dates: start: 20140507

REACTIONS (3)
  - Infection [None]
  - Pneumonia [None]
  - Leukopenia [None]

NARRATIVE: CASE EVENT DATE: 20140709
